FAERS Safety Report 24321216 (Version 1)
Quarter: 2024Q3

REPORT INFORMATION
  Report Type: Spontaneous
  Country: US (occurrence: US)
  Receive Date: 20240916
  Receipt Date: 20240916
  Transmission Date: 20241016
  Serious: No
  Sender: BIOGEN
  Company Number: US-BIOGEN-2023BI01242740

PATIENT
  Sex: Female

DRUGS (1)
  1. SKYCLARYS [Suspect]
     Active Substance: OMAVELOXOLONE
     Indication: Friedreich^s ataxia
     Route: 050
     Dates: start: 20230713

REACTIONS (11)
  - Gastrooesophageal reflux disease [Unknown]
  - Hepatic enzyme abnormal [Unknown]
  - Melanocytic naevus [Unknown]
  - Balance disorder [Unknown]
  - Feeling hot [Unknown]
  - Dyspepsia [Unknown]
  - Brain natriuretic peptide increased [Unknown]
  - Asthenia [Unknown]
  - Back pain [Unknown]
  - Blood cholesterol increased [Unknown]
  - Fatigue [Unknown]

NARRATIVE: CASE EVENT DATE: 20230101
